FAERS Safety Report 5128789-7 (Version None)
Quarter: 2006Q4

REPORT INFORMATION
  Report Type: 
  Country: None (occurrence: None)
  Receive Date: 20061017
  Receipt Date: 20060907
  Transmission Date: 20070319
  Serious: Yes (Hospitalization, Other)
  Sender: FDA-Public Use
  Company Number: GB-BRISTOL-MYERS SQUIBB COMPANY-13502398

PATIENT
  Age: 41 Year
  Sex: Female

DRUGS (6)
  1. ABILIFY [Suspect]
     Indication: PSYCHOTIC DISORDER
     Dosage: DURATION OF THERAPY:  COUPLE YEARS
  2. ALCOHOL [Suspect]
  3. HALOPERIDOL [Concomitant]
  4. THIAMINE [Concomitant]
  5. MULTIVITAMIN [Concomitant]
  6. PABRINEX [Concomitant]

REACTIONS (3)
  - ALCOHOLISM [None]
  - HALLUCINATION [None]
  - PSYCHOTIC DISORDER [None]
